FAERS Safety Report 5379801-1 (Version None)
Quarter: 2007Q3

REPORT INFORMATION
  Report Type: 
  Country: None (occurrence: None)
  Receive Date: 20070703
  Receipt Date: 20070620
  Transmission Date: 20080115
  Serious: Yes (Hospitalization, Other)
  Sender: FDA-Public Use
  Company Number: GXKR2007JP05350

PATIENT
  Age: 69 Year
  Sex: Female

DRUGS (4)
  1. RIFAMPICIN [Suspect]
     Indication: LYMPH NODE TUBERCULOSIS
  2. ISONIAZID [Concomitant]
  3. ETHAMBUTOL HYDROCHLORIDE [Concomitant]
  4. PYRAZINAMIDE [Concomitant]

REACTIONS (2)
  - FEMORAL ARTERY ANEURYSM [None]
  - HEPATIC FUNCTION ABNORMAL [None]
